FAERS Safety Report 4803285-2 (Version None)
Quarter: 2005Q4

REPORT INFORMATION
  Report Type: 
  Country: None (occurrence: None)
  Receive Date: 20051013
  Receipt Date: 20050923
  Transmission Date: 20060501
  Serious: Yes (Hospitalization)
  Sender: FDA-Public Use
  Company Number: 217679

PATIENT
  Age: 44 Year
  Sex: Female
  Weight: 61.7 kg

DRUGS (12)
  1. AVASTIN [Suspect]
     Indication: BREAST CANCER METASTATIC
     Dosage: 962 MG, Q3W, INTRAVENOUS
     Route: 042
     Dates: start: 20050823, end: 20050904
  2. XELODA [Suspect]
     Indication: BREAST CANCER METASTATIC
     Dosage: 3500 MG, QD, ORAL
     Route: 048
     Dates: start: 20050823, end: 20050904
  3. ATIVAN [Concomitant]
  4. FENTANYL (FENTANYL CITRATE) [Concomitant]
  5. DICLOXACILLIN [Concomitant]
  6. CALCIUM D 500             (CALCIUM CARBONATE, CHOLECALCIFEROL) [Concomitant]
  7. COLACE                (DOCUSATE SODIUM) [Concomitant]
  8. ABREVA [Concomitant]
  9. IMODIUM [Concomitant]
  10. DIFLUCAN [Concomitant]
  11. LOMOTIL [Concomitant]
  12. PEPCID [Concomitant]

REACTIONS (34)
  - ABDOMINAL PAIN UPPER [None]
  - ACTIVATED PARTIAL THROMBOPLASTIN TIME PROLONGED [None]
  - BACTERIA URINE [None]
  - BLOOD ALKALINE PHOSPHATASE INCREASED [None]
  - BLOOD CALCIUM DECREASED [None]
  - BLOOD POTASSIUM DECREASED [None]
  - CAECITIS [None]
  - CULTURE URINE POSITIVE [None]
  - DEHYDRATION [None]
  - DIARRHOEA [None]
  - DRUG INTOLERANCE [None]
  - ELECTROCARDIOGRAM ST-T CHANGE [None]
  - FIBRIN D DIMER INCREASED [None]
  - HAEMATOCRIT DECREASED [None]
  - HAEMOGLOBIN DECREASED [None]
  - INTERNATIONAL NORMALISED RATIO INCREASED [None]
  - KLEBSIELLA INFECTION [None]
  - LUNG CONSOLIDATION [None]
  - METASTASES TO BONE [None]
  - MIGRAINE [None]
  - PAIN [None]
  - PALMAR-PLANTAR ERYTHRODYSAESTHESIA SYNDROME [None]
  - PLATELET COUNT DECREASED [None]
  - PROCEDURAL COMPLICATION [None]
  - PROTHROMBIN TIME PROLONGED [None]
  - PYREXIA [None]
  - SEPSIS [None]
  - SINUS TACHYCARDIA [None]
  - STOMATITIS [None]
  - STREPTOCOCCAL INFECTION [None]
  - URINARY TRACT INFECTION [None]
  - VITAMIN K DEFICIENCY [None]
  - VOMITING [None]
  - WHITE BLOOD CELL COUNT DECREASED [None]
